FAERS Safety Report 5865500-6 (Version None)
Quarter: 2008Q3

REPORT INFORMATION
  Report Type: 
  Country: None (occurrence: None)
  Receive Date: 20080829
  Receipt Date: 20080825
  Transmission Date: 20090109
  Serious: Yes (Death, Other)
  Sender: FDA-Public Use
  Company Number: JP-BRISTOL-MYERS SQUIBB COMPANY-14313571

PATIENT
  Sex: Male

DRUGS (6)
  1. CYCLOPHOSPHAMIDE [Suspect]
     Indication: PROPHYLAXIS
  2. CYCLOSPORINE [Suspect]
     Indication: PROPHYLAXIS
  3. METHOTREXATE SODIUM [Suspect]
     Indication: PROPHYLAXIS
     Dosage: 15MG ON DAY1,10MG ON DAY +3,+6AND+11.
  4. PREDNISOLONE [Suspect]
     Indication: PROPHYLAXIS
     Dosage: DAY 7-DAY 35
  5. THYMOGLOBULIN [Suspect]
  6. RADIATION THERAPY [Suspect]
     Indication: PROPHYLAXIS
     Dosage: TAI 10 GY, FIVE FRACTIONS

REACTIONS (7)
  - EPSTEIN-BARR VIRUS ASSOCIATED LYMPHOPROLIFERATIVE DISORDER [None]
  - GRAFT VERSUS HOST DISEASE [None]
  - HERPES SIMPLEX [None]
  - INFECTION [None]
  - PNEUMONIA FUNGAL [None]
  - PROGRESSIVE MULTIFOCAL LEUKOENCEPHALOPATHY [None]
  - STAPHYLOCOCCAL SEPSIS [None]
